FAERS Safety Report 10434895 (Version 2)
Quarter: 2014Q4

REPORT INFORMATION
  Report Type: Spontaneous
  Country: US (occurrence: None)
  Receive Date: 20140815
  Receipt Date: 20141208
  Transmission Date: 20150528
  Serious: No
  Sender: FDA-Public Use
  Company Number: 2014TUS004398

PATIENT
  Age: 86 Year
  Sex: Female
  Weight: 74.8 kg

DRUGS (2)
  1. WARFARIN [Concomitant]
     Active Substance: WARFARIN
  2. BRINTELLIX [Suspect]
     Active Substance: VORTIOXETINE HYDROBROMIDE
     Indication: MAJOR DEPRESSION
     Route: 048
     Dates: start: 20140508, end: 201406

REACTIONS (9)
  - Condition aggravated [None]
  - Muscle tightness [None]
  - Dizziness [None]
  - Paraesthesia [None]
  - Fatigue [None]
  - Asthenia [None]
  - Musculoskeletal stiffness [None]
  - Nausea [None]
  - Feeling abnormal [None]

NARRATIVE: CASE EVENT DATE: 201406
